FAERS Safety Report 10587572 (Version 4)
Quarter: 2016Q1

REPORT INFORMATION
  Report Type: Spontaneous
  Country: US (occurrence: US)
  Receive Date: 20141117
  Receipt Date: 20160113
  Transmission Date: 20160525
  Serious: Yes (Other)
  Sender: FDA-Public Use
  Company Number: US-SA-2014SA154121

PATIENT
  Age: 57 Year
  Sex: Male
  Weight: 65.7 kg

DRUGS (10)
  1. ACTOS [Concomitant]
     Active Substance: PIOGLITAZONE HYDROCHLORIDE
     Route: 048
  2. GLUCOTROL XL [Concomitant]
     Active Substance: GLIPIZIDE
     Route: 048
  3. METFORMIN [Concomitant]
     Active Substance: METFORMIN HYDROCHLORIDE
     Route: 048
  4. NEXIUM [Concomitant]
     Active Substance: ESOMEPRAZOLE MAGNESIUM
     Route: 048
  5. ZOCOR [Concomitant]
     Active Substance: SIMVASTATIN
     Route: 048
  6. LANTUS [Concomitant]
     Active Substance: INSULIN GLARGINE
     Dosage: DOSE:5 UNIT(S)
     Route: 058
  7. ASPIRIN. [Suspect]
     Active Substance: ASPIRIN
     Route: 065
  8. PANTHENOL/RETINOL/THIAMINE HYDROCHLORIDE/ASCORBIC ACID/ERGOCALCIFEROL/FOLIC ACID/RIBOFLAVIN/NICOTINA [Concomitant]
     Route: 048
  9. PLAVIX [Suspect]
     Active Substance: CLOPIDOGREL BISULFATE
     Indication: STENT PLACEMENT
     Route: 065
     Dates: start: 2004, end: 2011
  10. PLAVIX [Suspect]
     Active Substance: CLOPIDOGREL BISULFATE
     Indication: PERIPHERAL ARTERIAL OCCLUSIVE DISEASE
     Route: 065
     Dates: start: 2004, end: 2011

REACTIONS (5)
  - Balance disorder [Unknown]
  - Cerebrovascular accident [Unknown]
  - Cerebral haemorrhage [Unknown]
  - Dizziness [Unknown]
  - Paralysis [Unknown]

NARRATIVE: CASE EVENT DATE: 20090722
